FAERS Safety Report 6359921-5 (Version None)
Quarter: 2009Q3

REPORT INFORMATION
  Report Type: 
  Country: None (occurrence: None)
  Receive Date: 20090917
  Receipt Date: 20090909
  Transmission Date: 20100115
  Serious: Yes (Other)
  Sender: FDA-Public Use
  Company Number: IT-ASTRAZENECA-2009SE12349

PATIENT
  Sex: Female

DRUGS (1)
  1. SIMESTAT [Suspect]
     Indication: HYPERCHOLESTEROLAEMIA
     Route: 048

REACTIONS (3)
  - DIZZINESS [None]
  - SWELLING FACE [None]
  - URTICARIA [None]
